FAERS Safety Report 7458111-2 (Version None)
Quarter: 2011Q2

REPORT INFORMATION
  Report Type: 
  Country: None (occurrence: None)
  Receive Date: 20110504
  Receipt Date: 20110428
  Transmission Date: 20111010
  Serious: Yes (Other)
  Sender: FDA-Public Use
  Company Number: A0924892A

PATIENT
  Age: 42 Year
  Sex: Female
  Weight: 84 kg

DRUGS (6)
  1. VITAMINS [Concomitant]
  2. GLUCOSAMINE [Concomitant]
  3. ALLI [Suspect]
     Indication: WEIGHT LOSS DIET
     Route: 048
     Dates: start: 20100101
  4. ANTIBIOTIC [Concomitant]
     Indication: SKIN DISORDER
  5. WELLBUTRIN [Concomitant]
     Indication: ANXIETY
  6. ZOLOFT [Concomitant]
     Indication: ANXIETY

REACTIONS (8)
  - COLONOSCOPY [None]
  - THERAPEUTIC RESPONSE UNEXPECTED [None]
  - HAEMATOCHEZIA [None]
  - TREATMENT NONCOMPLIANCE [None]
  - HAEMORRHOIDAL HAEMORRHAGE [None]
  - RECTAL HAEMORRHAGE [None]
  - DRUG ADMINISTRATION ERROR [None]
  - DIARRHOEA [None]
